FAERS Safety Report 12669660 (Version 1)
Quarter: 2016Q3

REPORT INFORMATION
  Report Type: Spontaneous
  Country: US (occurrence: US)
  Receive Date: 20160819
  Receipt Date: 20160819
  Transmission Date: 20161109
  Serious: Yes (Other)
  Sender: FDA-Public Use
  Company Number: US-BAYER-2016-155777

PATIENT
  Age: 29 Year
  Sex: Female

DRUGS (2)
  1. SKYLA [Suspect]
     Active Substance: LEVONORGESTREL
     Indication: CONTRACEPTION
     Dosage: 14 MCG/24HR, CONT
     Route: 015
     Dates: start: 201606
  2. LEVONORGESTREL W/ETHINYLESTRADIOL [Suspect]
     Active Substance: ETHINYL ESTRADIOL\LEVONORGESTREL
     Indication: GENITAL HAEMORRHAGE
     Route: 048

REACTIONS (11)
  - Mood altered [None]
  - Drug ineffective [None]
  - Hot flush [None]
  - Feeling abnormal [None]
  - Genital haemorrhage [None]
  - Genital haemorrhage [None]
  - Lacrimation increased [None]
  - Vulvovaginal dryness [None]
  - Depression [None]
  - Vaginal infection [None]
  - Loss of libido [None]

NARRATIVE: CASE EVENT DATE: 201606
